FAERS Safety Report 9036671 (Version 1)
Quarter: 2013Q1

REPORT INFORMATION
  Report Type: Spontaneous
  Country: US (occurrence: None)
  Receive Date: 20130114
  Receipt Date: 20130114
  Transmission Date: 20140127
  Serious: Yes (Disabling)
  Sender: FDA-Public Use
  Company Number: DSA_59941_2012

PATIENT
  Age: 57 Year
  Sex: Female

DRUGS (1)
  1. ACNE FREE KIT [Suspect]
     Indication: ACNE
     Dosage: QD
     Route: 061
     Dates: start: 20120822, end: 201208

REACTIONS (6)
  - Eye swelling [None]
  - Erythema [None]
  - Hyperhidrosis [None]
  - Impaired work ability [None]
  - Pain [None]
  - Swelling face [None]
